FAERS Safety Report 14303983 (Version 1)
Quarter: 2017Q4

REPORT INFORMATION
  Report Type: Spontaneous
  Country: FR (occurrence: FR)
  Receive Date: 20171219
  Receipt Date: 20171219
  Transmission Date: 20180321
  Serious: Yes (Life-Threatening, Hospitalization)
  Sender: FDA-Public Use
  Company Number: FR-OTSUKA-KJ20092810

PATIENT

DRUGS (9)
  1. RISPERDAL [Suspect]
     Active Substance: RISPERIDONE
     Route: 065
     Dates: start: 20090609, end: 20090611
  2. LOXAPAC [Suspect]
     Active Substance: LOXAPINE SUCCINATE
     Route: 065
  3. ODRIK [Concomitant]
     Active Substance: TRANDOLAPRIL
     Indication: HYPERTENSION
     Route: 048
  4. RISPERIDONE. [Suspect]
     Active Substance: RISPERIDONE
     Dosage: UNK
     Dates: start: 20090609, end: 20090611
  5. IPERTEN [Concomitant]
     Active Substance: MANIDIPINE
     Indication: HYPERTENSION
     Route: 048
  6. ARIPIPRAZOLE. [Suspect]
     Active Substance: ARIPIPRAZOLE
     Indication: PSYCHOTIC DISORDER
     Route: 048
     Dates: start: 20090531, end: 20090603
  7. TENSTATEN [Suspect]
     Active Substance: CICLETANINE HYDROCHLORIDE
     Indication: HYPERTENSION
     Route: 048
     Dates: start: 200902, end: 20090603
  8. THIAZIDE [Concomitant]
     Active Substance: UNSPECIFIED INGREDIENT
     Route: 065
  9. LEVOTHYROX [Concomitant]
     Active Substance: LEVOTHYROXINE
     Indication: HYPOTHYROIDISM
     Route: 048

REACTIONS (1)
  - Polydipsia [Recovered/Resolved]

NARRATIVE: CASE EVENT DATE: 20090603
